FAERS Safety Report 16262566 (Version 3)
Quarter: 2020Q1

REPORT INFORMATION
  Report Type: Report from Study
  Country: CA (occurrence: CA)
  Receive Date: 20190502
  Receipt Date: 20200224
  Transmission Date: 20200409
  Serious: Yes (Hospitalization, Other)
  Sender: FDA-Public Use
  Company Number: CA-BRISTOL-MYERS SQUIBB COMPANY-BMS-2017-033160

PATIENT
  Age: 55 Year
  Sex: Male

DRUGS (2)
  1. ABATACEPT [Suspect]
     Active Substance: ABATACEPT
     Indication: PRODUCT USED FOR UNKNOWN INDICATION
     Dosage: 1000 MG, Q4WK
     Route: 042
     Dates: start: 20181003
  2. ABATACEPT [Suspect]
     Active Substance: ABATACEPT
     Indication: RHEUMATOID ARTHRITIS
     Dosage: 1000 MG, Q4WK
     Route: 042
     Dates: start: 20110601

REACTIONS (6)
  - Nodule [Unknown]
  - Product dose omission [Recovered/Resolved]
  - Musculoskeletal disorder [Unknown]
  - Calcinosis [Unknown]
  - Influenza [Unknown]
  - Bone disorder [Unknown]

NARRATIVE: CASE EVENT DATE: 20170412
